FAERS Safety Report 7757918-1 (Version None)
Quarter: 2011Q3

REPORT INFORMATION
  Report Type: 
  Country: None (occurrence: None)
  Receive Date: 20110918
  Receipt Date: 20090109
  Transmission Date: 20111222
  Serious: Yes (Other)
  Sender: FDA-Public Use
  Company Number: PHHY2010TW53404

PATIENT
  Sex: Male

DRUGS (2)
  1. GLEEVEC [Suspect]
     Indication: GASTROINTESTINAL STROMAL TUMOUR
  2. SUTENT [Suspect]
     Indication: GASTROINTESTINAL STROMAL TUMOUR
     Dosage: 3 DF, UNK
     Route: 048
     Dates: start: 20090801

REACTIONS (6)
  - NEOPLASM MALIGNANT [None]
  - BLISTER [None]
  - HEPATIC NEOPLASM [None]
  - GASTROINTESTINAL STROMAL TUMOUR [None]
  - MOOD ALTERED [None]
  - NEOPLASM RECURRENCE [None]
